FAERS Safety Report 10682874 (Version 1)
Quarter: 2014Q4

REPORT INFORMATION
  Report Type: Other
  Country: FR (occurrence: FR)
  Receive Date: 20141230
  Receipt Date: 20141230
  Transmission Date: 20150529
  Serious: Yes (Hospitalization)
  Sender: FDA-Public Use
  Company Number: FR-MYLANLABS-2014M1014757

PATIENT
  Age: 71 Year
  Sex: Male

DRUGS (6)
  1. HUMALOG [Concomitant]
     Active Substance: INSULIN LISPRO
  2. ACTISKENAN [Concomitant]
     Active Substance: MORPHINE SULFATE
  3. CREON [Concomitant]
     Active Substance: PANCRELIPASE AMYLASE\PANCRELIPASE LIPASE\PANCRELIPASE PROTEASE
  4. SKENAN [Concomitant]
     Active Substance: MORPHINE SULFATE
  5. GEMCITABINE [Suspect]
     Active Substance: GEMCITABINE\GEMCITABINE HYDROCHLORIDE
     Indication: CHEMOTHERAPY
     Dosage: UNK
     Dates: start: 20140918
  6. ABRAXANE [Suspect]
     Active Substance: PACLITAXEL
     Indication: CHEMOTHERAPY
     Dosage: UNK
     Dates: start: 20140918, end: 20141024

REACTIONS (2)
  - Interstitial lung disease [Recovering/Resolving]
  - Computerised tomogram thorax abnormal [Recovering/Resolving]

NARRATIVE: CASE EVENT DATE: 20141104
